FAERS Safety Report 9835301 (Version 1)
Quarter: 2014Q1

REPORT INFORMATION
  Report Type: Spontaneous
  Country: US (occurrence: US)
  Receive Date: 20140122
  Receipt Date: 20140122
  Transmission Date: 20141002
  Serious: No
  Sender: FDA-Public Use
  Company Number: US-BRISTOL-MYERS SQUIBB COMPANY-19925650

PATIENT
  Age: 76 Year
  Sex: Male

DRUGS (4)
  1. ELIQUIS [Suspect]
     Indication: CEREBROVASCULAR ACCIDENT
  2. ALLOPURINOL [Concomitant]
  3. PREDNISONE [Concomitant]
     Dosage: 1DF:5MG?2 MORE WEEKS
  4. AVODART [Concomitant]

REACTIONS (1)
  - Epistaxis [Unknown]
